FAERS Safety Report 17399839 (Version 1)
Quarter: 2020Q1

REPORT INFORMATION
  Report Type: Spontaneous
  Country: NL (occurrence: NL)
  Receive Date: 20200211
  Receipt Date: 20200211
  Transmission Date: 20200409
  Serious: Yes (Hospitalization, Other)
  Sender: FDA-Public Use
  Company Number: NL-TEVA-2020-NL-1183065

PATIENT
  Age: 48 Year
  Sex: Male

DRUGS (7)
  1. NIVOLUMAB [Suspect]
     Active Substance: NIVOLUMAB
     Indication: PANCREATIC NEUROENDOCRINE TUMOUR METASTATIC
     Route: 065
  2. TEMOZOLOMIDE. [Suspect]
     Active Substance: TEMOZOLOMIDE
     Indication: PANCREATIC NEUROENDOCRINE TUMOUR METASTATIC
     Route: 065
  3. BEZ235 [Suspect]
     Active Substance: DACTOLISIB
     Indication: PANCREATIC NEUROENDOCRINE TUMOUR METASTATIC
     Route: 065
  4. CAPECITABINE. [Suspect]
     Active Substance: CAPECITABINE
     Indication: PANCREATIC NEUROENDOCRINE TUMOUR METASTATIC
     Route: 065
  5. SOMATULINE [Suspect]
     Active Substance: LANREOTIDE ACETATE
     Indication: PANCREATIC NEUROENDOCRINE TUMOUR METASTATIC
     Route: 065
  6. STREPTOZOCIN [Suspect]
     Active Substance: STREPTOZOCIN
     Indication: PANCREATIC NEUROENDOCRINE TUMOUR METASTATIC
     Route: 065
  7. 5-FLUOROURACIL [Suspect]
     Active Substance: FLUOROURACIL
     Indication: PANCREATIC NEUROENDOCRINE TUMOUR METASTATIC
     Route: 065

REACTIONS (3)
  - Ectopic hormone secretion [Recovered/Resolved]
  - Clonal evolution [Recovered/Resolved]
  - Hypercalcaemia [Recovered/Resolved]
